FAERS Safety Report 9275568 (Version 1)
Quarter: 2013Q2

REPORT INFORMATION
  Report Type: Spontaneous
  Country: US (occurrence: US)
  Receive Date: 20130507
  Receipt Date: 20130507
  Transmission Date: 20140414
  Serious: No
  Sender: FDA-Public Use
  Company Number: US-PFIZER INC-2013139851

PATIENT
  Sex: Female
  Weight: 99.32 kg

DRUGS (8)
  1. GABAPENTIN [Suspect]
     Indication: HERPES ZOSTER
     Dosage: 300 MG, 3X/DAY
  2. GABAPENTIN [Suspect]
     Indication: POST HERPETIC NEURALGIA
  3. LYRICA [Suspect]
     Indication: HERPES ZOSTER
     Dosage: 200 MG, UNK
  4. FAMVIR [Suspect]
     Dosage: UNK
  5. ACETYLSALICYLIC ACID [Concomitant]
     Dosage: UNK
  6. CLONIDINE [Concomitant]
     Dosage: HALF TABLET OF 0.1 MG DAILY
     Route: 048
  7. PROBIOTICA [Concomitant]
     Indication: IMMUNE SYSTEM DISORDER
     Dosage: UNK
  8. FISH OIL [Concomitant]
     Dosage: UNK

REACTIONS (5)
  - Drug ineffective [Unknown]
  - Breast pain [Not Recovered/Not Resolved]
  - Muscle disorder [Not Recovered/Not Resolved]
  - Pruritus [Not Recovered/Not Resolved]
  - Pain in extremity [Not Recovered/Not Resolved]
